FAERS Safety Report 6568610-3 (Version None)
Quarter: 2010Q1

REPORT INFORMATION
  Report Type: 
  Country: None (occurrence: None)
  Receive Date: 20100203
  Receipt Date: 20100122
  Transmission Date: 20100710
  Serious: Yes (Other)
  Sender: FDA-Public Use
  Company Number: US-MERCK-0606USA05133

PATIENT
  Age: 73 Year
  Sex: Female

DRUGS (4)
  1. ZETIA [Suspect]
     Indication: BLOOD CHOLESTEROL INCREASED
     Route: 048
     Dates: start: 20050101
  2. ZETIA [Suspect]
     Route: 048
     Dates: start: 20100101
  3. ANAPRIL [Concomitant]
     Route: 065
  4. METOPROLOL [Concomitant]
     Route: 065

REACTIONS (13)
  - DIARRHOEA [None]
  - DIZZINESS [None]
  - DYSGEUSIA [None]
  - FATIGUE [None]
  - GALLBLADDER PAIN [None]
  - GINGIVAL DISORDER [None]
  - GINGIVAL PAIN [None]
  - MUSCULAR WEAKNESS [None]
  - MYALGIA [None]
  - MYOCARDIAL INFARCTION [None]
  - ORAL DISCOMFORT [None]
  - PAIN IN EXTREMITY [None]
  - SALIVA ALTERED [None]
